FAERS Safety Report 13042774 (Version 1)
Quarter: 2016Q4

REPORT INFORMATION
  Report Type: Report from Study
  Country: US (occurrence: US)
  Receive Date: 20161219
  Receipt Date: 20161219
  Transmission Date: 20170207
  Serious: Yes (Hospitalization)
  Sender: FDA-Public Use
  Company Number: US-GILEAD-2016-0243389

PATIENT
  Age: 81 Year
  Sex: Female

DRUGS (4)
  1. UPTRAVI [Concomitant]
     Active Substance: SELEXIPAG
     Dosage: 800 UG, BID
  2. WARFARIN [Concomitant]
     Active Substance: WARFARIN
  3. AMBRISENTAN [Suspect]
     Active Substance: AMBRISENTAN
     Indication: PRODUCT USED FOR UNKNOWN INDICATION
     Dosage: 5 MG, QD
     Route: 065
     Dates: start: 20140924
  4. ADCIRCA [Concomitant]
     Active Substance: TADALAFIL

REACTIONS (4)
  - Nasopharyngitis [Unknown]
  - Fluid retention [Unknown]
  - Fatigue [Unknown]
  - Diarrhoea [Unknown]
